FAERS Safety Report 7709999-9 (Version None)
Quarter: 2011Q3

REPORT INFORMATION
  Report Type: 
  Country: None (occurrence: None)
  Receive Date: 20110825
  Receipt Date: 20101028
  Transmission Date: 20111222
  Serious: Yes (Hospitalization)
  Sender: FDA-Public Use
  Company Number: PHHY2011TR72128

PATIENT
  Age: 3 Hour
  Sex: Female
  Weight: 3.09 kg

DRUGS (2)
  1. VITAMIN K TAB [Suspect]
  2. METHERGINE [Suspect]
     Dosage: 0.2 MG, UNK
     Route: 030

REACTIONS (4)
  - APPETITE DISORDER [None]
  - WRONG DRUG ADMINISTERED [None]
  - LETHARGY [None]
  - TONIC CONVULSION [None]
